FAERS Safety Report 8447230-X (Version None)
Quarter: 2012Q2

REPORT INFORMATION
  Report Type: 
  Country: None (occurrence: None)
  Receive Date: 20120619
  Receipt Date: 20120614
  Transmission Date: 20120825
  Serious: Yes (Other)
  Sender: FDA-Public Use
  Company Number: US-PFIZER INC-2012144248

PATIENT
  Sex: Male
  Weight: 82.54 kg

DRUGS (6)
  1. DEPAKOTE [Concomitant]
     Dosage: UNK
  2. ACETYLSALICYLIC ACID [Concomitant]
     Dosage: 81 MG, UNK
  3. HYDROCORTISONE [Concomitant]
     Dosage: 325 MG, UNK
  4. LISINOPRIL [Concomitant]
     Dosage: UNK
  5. VIAGRA [Suspect]
     Indication: POOR PERIPHERAL CIRCULATION
     Dosage: 50 MG, 1X/DAY
     Route: 048
     Dates: start: 20111001
  6. FLEXERIL [Concomitant]
     Dosage: UNK

REACTIONS (3)
  - BLOOD TEST ABNORMAL [None]
  - FLUID IMBALANCE [None]
  - ARTHRALGIA [None]
